FAERS Safety Report 18277812 (Version 1)
Quarter: 2020Q3

REPORT INFORMATION
  Report Type: Spontaneous
  Country: DE (occurrence: DE)
  Receive Date: 20200917
  Receipt Date: 20200917
  Transmission Date: 20201103
  Serious: Yes (Death, Life-Threatening, Hospitalization)
  Sender: FDA-Public Use
  Company Number: DE-SA-2020SA250734

PATIENT

DRUGS (18)
  1. SITAGLIPTIN [Concomitant]
     Active Substance: SITAGLIPTIN
     Dosage: 100 MG, QD
     Route: 048
  2. METOPROLOL. [Concomitant]
     Active Substance: METOPROLOL
     Dosage: 95 MG, BID
     Route: 048
  3. AMLODIPINE [Concomitant]
     Active Substance: AMLODIPINE BESYLATE
     Dosage: 10 MG, QD
     Route: 048
  4. LEVOTHYROXINE SODIUM. [Concomitant]
     Active Substance: LEVOTHYROXINE SODIUM
     Dosage: 175 UG, QD
     Route: 048
  5. CANDESARTAN. [Concomitant]
     Active Substance: CANDESARTAN
     Dosage: 16 MG, BID
     Route: 048
  6. TORASEMIDE [Suspect]
     Active Substance: TORSEMIDE
     Dosage: 10 MG, QD
     Route: 048
  7. ISONIAZID. [Suspect]
     Active Substance: ISONIAZID
     Dosage: NK MG, SEIT 11072020
  8. PYRAZINAMIDE. [Suspect]
     Active Substance: PYRAZINAMIDE
     Dosage: SELF 11/07/2020
  9. MAGALDRAT [Concomitant]
     Active Substance: MAGALDRATE
     Dosage: 1600 MG, QD
     Route: 048
  10. APIXABAN [Suspect]
     Active Substance: APIXABAN
     Dosage: 5 MG, BID
     Route: 048
  11. NEPRESOL [Concomitant]
     Dosage: NK MG, 1?1?1?0, TABLETTEN
     Route: 048
  12. PANTOPRAZOL [Concomitant]
     Active Substance: PANTOPRAZOLE SODIUM
     Dosage: 20 MG, QD
     Route: 048
  13. RIFAMPICIN [Suspect]
     Active Substance: RIFAMPIN
     Dosage: SELF 11/07/2020
  14. ETHAMBUTOL [Suspect]
     Active Substance: ETHAMBUTOL HYDROCHLORIDE
     Dosage: NK MG, SEIT 11072020
  15. COLECALCIFEROL (VITAMIN D) [Concomitant]
     Dosage: 20.000 IE, 5?0?0?0, DROPS
     Route: 048
  16. METFORMIN [Concomitant]
     Active Substance: METFORMIN HYDROCHLORIDE
     Dosage: 1000 MG, TID
     Route: 048
  17. GLYCOPYRRONIUMBROMID/INDACATEROL [Concomitant]
     Dosage: 43|85 ?G, 1?0?0?0,
     Route: 048
  18. BECLOMETASONE DIPROPIONATE [Concomitant]
     Active Substance: BECLOMETHASONE DIPROPIONATE
     Dosage: 87|5|9 ?G, 2?0?2?0,METERED DOSE AEROSOL/DOSING AEROSOL
     Route: 055

REACTIONS (10)
  - Haemoptysis [Unknown]
  - Fatigue [Unknown]
  - Cough [Unknown]
  - General physical health deterioration [Unknown]
  - Product monitoring error [Unknown]
  - Pyrexia [Unknown]
  - Condition aggravated [Unknown]
  - Night sweats [Unknown]
  - Dehydration [Unknown]
  - Labelled drug-drug interaction medication error [Unknown]

NARRATIVE: CASE EVENT DATE: 20200711
